FAERS Safety Report 6250434-8 (Version None)
Quarter: 2009Q2

REPORT INFORMATION
  Report Type: 
  Country: None (occurrence: None)
  Receive Date: 20090630
  Receipt Date: 20090623
  Transmission Date: 20091009
  Serious: Yes (Hospitalization)
  Sender: FDA-Public Use
  Company Number: PHHY2009JP14885

PATIENT
  Age: 65 Year
  Sex: Male

DRUGS (14)
  1. TEGRETOL [Suspect]
     Indication: EPILEPSY
     Dosage: 200 MG, TID
     Route: 048
     Dates: end: 20090421
  2. MICARDIS [Concomitant]
     Dosage: UNK
     Route: 048
  3. RENIVACE [Concomitant]
     Dosage: UNK
     Route: 048
  4. LASIX [Concomitant]
     Dosage: UNK
  5. CEREKINON [Concomitant]
     Dosage: UNK
  6. DEPAKENE [Concomitant]
  7. BIOFERMIN [Concomitant]
  8. LIPITOR [Concomitant]
  9. TAKEPRON [Concomitant]
  10. PLAVIX [Concomitant]
  11. DIART [Concomitant]
  12. FLUITRAN [Concomitant]
  13. ADALAT CC [Concomitant]
  14. MAGLAX [Concomitant]

REACTIONS (1)
  - BRADYCARDIA [None]
